FAERS Safety Report 24236606 (Version 1)
Quarter: 2024Q3

REPORT INFORMATION
  Report Type: Report from Study
  Country: US (occurrence: None)
  Receive Date: 20240822
  Receipt Date: 20240822
  Transmission Date: 20241016
  Serious: Yes (Hospitalization)
  Sender: ASTRAZENECA
  Company Number: 2021A703725

PATIENT
  Sex: Female

DRUGS (1)
  1. TAGRISSO [Suspect]
     Active Substance: OSIMERTINIB
     Route: 048

REACTIONS (6)
  - Haematological infection [Unknown]
  - Staphylococcal infection [Unknown]
  - Dry skin [Unknown]
  - Hair texture abnormal [Unknown]
  - Dry mouth [Unknown]
  - Nausea [Unknown]
